FAERS Safety Report 20648215 (Version 2)
Quarter: 2022Q2

REPORT INFORMATION
  Report Type: Other
  Country: US (occurrence: US)
  Receive Date: 20220329
  Receipt Date: 20220503
  Transmission Date: 20220721
  Serious: No
  Sender: FDA-Public Use
  Company Number: US-Covis Pharma GmbH-2022COV00709

PATIENT
  Age: 33 Year
  Sex: Female

DRUGS (2)
  1. MAKENA [Suspect]
     Active Substance: HYDROXYPROGESTERONE CAPROATE
     Indication: Premature delivery
     Route: 058
     Dates: start: 20220110, end: 20220328
  2. VITAFOL ONE [Concomitant]
     Active Substance: .ALPHA.-TOCOPHEROL\ASCORBIC ACID\COPPER\CYANOCOBALAMIN\FOLIC ACID\IODINE\IRON\MAGNESIUM\NIACIN\OMEGA
     Indication: Pregnancy
     Dosage: 29-1-200MG
     Dates: start: 20211116

REACTIONS (6)
  - Uterine contractions during pregnancy [Recovered/Resolved]
  - Anaemia of pregnancy [Not Recovered/Not Resolved]
  - Abdominal pain [Recovered/Resolved]
  - Malaise [Unknown]
  - Product dose omission issue [Unknown]
  - Inappropriate schedule of product administration [Unknown]

NARRATIVE: CASE EVENT DATE: 20220101
